FAERS Safety Report 5288839-4 (Version None)
Quarter: 2007Q2

REPORT INFORMATION
  Report Type: 
  Country: None (occurrence: None)
  Receive Date: 20070405
  Receipt Date: 20070402
  Transmission Date: 20071010
  Serious: Yes (Life-Threatening)
  Sender: FDA-Public Use
  Company Number: US-MERCK-0703USA05112

PATIENT
  Age: 66 Year
  Sex: Male

DRUGS (4)
  1. ZETIA [Suspect]
     Indication: HYPERLIPIDAEMIA
     Route: 048
     Dates: start: 20061127
  2. DILANTIN [Concomitant]
     Indication: CONVULSION
     Route: 065
  3. KEPPRA [Concomitant]
     Indication: CONVULSION
     Route: 065
  4. [THERAPY UNSPECIFIED] [Concomitant]
     Indication: HYPERTENSION
     Route: 065

REACTIONS (2)
  - CONVULSION [None]
  - DRUG LEVEL DECREASED [None]
